FAERS Safety Report 4932889-1 (Version None)
Quarter: 2006Q1

REPORT INFORMATION
  Report Type: 
  Country: None (occurrence: None)
  Receive Date: 20060306
  Receipt Date: 20060301
  Transmission Date: 20060701
  Serious: Yes (Other)
  Sender: FDA-Public Use
  Company Number: US-JNJFOC-20060300713

PATIENT
  Sex: Female

DRUGS (8)
  1. LEVAQUIN [Suspect]
  2. TELITHROMYCIN [Suspect]
     Route: 048
  3. TELITHROMYCIN [Suspect]
     Route: 048
  4. MONTELUKAST [Concomitant]
  5. BUDESONIDE [Concomitant]
  6. RYNATAN [Concomitant]
  7. RYNATAN [Concomitant]
  8. RYNATAN [Concomitant]

REACTIONS (6)
  - ABDOMINAL PAIN UPPER [None]
  - EOSINOPHIL COUNT INCREASED [None]
  - HEPATIC ENZYME INCREASED [None]
  - NAUSEA [None]
  - PYREXIA [None]
  - SPLENOMEGALY [None]
